FAERS Safety Report 18374030 (Version 4)
Quarter: 2024Q1

REPORT INFORMATION
  Report Type: Report from Study
  Country: AT (occurrence: AT)
  Receive Date: 20201013
  Receipt Date: 20240131
  Transmission Date: 20240410
  Serious: Yes (Other)
  Sender: FDA-Public Use
  Company Number: AT-ROCHE-2664775

PATIENT
  Age: 64 Year
  Sex: Female

DRUGS (14)
  1. DENOSUMAB [Suspect]
     Active Substance: DENOSUMAB
     Indication: HER2 positive breast cancer
     Dosage: 120 MILLIGRAM, QMO
     Route: 058
     Dates: start: 201906
  2. HERCEPTIN [Suspect]
     Active Substance: TRASTUZUMAB
     Indication: HER2 positive breast cancer
     Dosage: 580 MILLIGRAM, Q3WK, LAST ADMINISTRATION: 13/SEP/2018
     Route: 058
     Dates: start: 20180530
  3. HERCEPTIN [Suspect]
     Active Substance: TRASTUZUMAB
     Dosage: 6 MILLIGRAM/KILOGRAM, Q3WK, LAST ADMINISTRATION: 03/MAY/2019
     Route: 058
     Dates: start: 20181011
  4. PERJETA [Suspect]
     Active Substance: PERTUZUMAB
     Indication: HER2 positive breast cancer
     Dosage: 420 MILLIGRAM, Q3WK, LAST ADMINISTRATION: 13/SEP/2018
     Route: 042
     Dates: start: 20180530
  5. PERJETA [Suspect]
     Active Substance: PERTUZUMAB
     Dosage: 420 MILLIGRAM, Q3WK, LAST ADMINISTRATION: 03/MAY/2019
     Route: 042
     Dates: start: 20181011
  6. PALBOCICLIB [Suspect]
     Active Substance: PALBOCICLIB
     Indication: HER2 positive breast cancer
     Dosage: 125 MILLIGRAM, QD
     Route: 048
     Dates: start: 20200626, end: 20200710
  7. PALBOCICLIB [Suspect]
     Active Substance: PALBOCICLIB
     Dosage: 75 MILLIGRAM, QD
     Route: 048
     Dates: start: 20200805, end: 20231002
  8. PALBOCICLIB [Suspect]
     Active Substance: PALBOCICLIB
     Dosage: 75 MILLIGRAM, QD
     Route: 048
     Dates: start: 20200805, end: 20231002
  9. PALBOCICLIB [Suspect]
     Active Substance: PALBOCICLIB
     Dosage: 100 MILLIGRAM, QD
     Route: 048
     Dates: start: 20231003
  10. PALBOCICLIB [Suspect]
     Active Substance: PALBOCICLIB
     Dosage: 100 MILLIGRAM, QD
     Route: 048
     Dates: start: 20200717, end: 20200724
  11. LETROZOLE [Suspect]
     Active Substance: LETROZOLE
     Indication: HER2 positive breast cancer
     Dosage: 2.5 MILLIGRAM, QD
     Route: 048
     Dates: start: 20200626
  12. TAXOTERE [Suspect]
     Active Substance: DOCETAXEL
     Indication: HER2 positive breast cancer
     Dosage: 137.19 MILLIGRAM, Q3WK, LAST ADMINISTRATION: 13/SEP/2018
     Route: 040
     Dates: start: 20180530
  13. MARCUMAR [Concomitant]
     Active Substance: PHENPROCOUMON
     Dosage: UNK
     Dates: start: 20181005
  14. BISOPROLOL FUMARATE [Concomitant]
     Active Substance: BISOPROLOL FUMARATE
     Dosage: UNK
     Dates: start: 20181005

REACTIONS (1)
  - Neutropenia [Recovered/Resolved]

NARRATIVE: CASE EVENT DATE: 20200710
